FAERS Safety Report 4807871-5 (Version None)
Quarter: 2005Q4

REPORT INFORMATION
  Report Type: 
  Country: None (occurrence: None)
  Receive Date: 20051020
  Receipt Date: 20051007
  Transmission Date: 20060501
  Serious: Yes (Other)
  Sender: FDA-Public Use
  Company Number: URSO-2005-037

PATIENT
  Sex: Male

DRUGS (4)
  1. URSODIOL [Suspect]
     Indication: HEPATIC CIRRHOSIS
     Dosage: 300 MG, PO
     Route: 048
     Dates: start: 20040827, end: 20050916
  2. URSODIOL [Suspect]
     Indication: HEPATITIS C
     Dosage: 300 MG, PO
     Route: 048
     Dates: start: 20040827, end: 20050916
  3. VITA-E (TOCOPHEROL ACETATE) [Concomitant]
  4. HICEE (ASCORBIC ACID) [Concomitant]

REACTIONS (2)
  - ERYTHEMA MULTIFORME [None]
  - TOXIC SKIN ERUPTION [None]
